FAERS Safety Report 5464325-3 (Version None)
Quarter: 2007Q3

REPORT INFORMATION
  Report Type: 
  Country: None (occurrence: None)
  Receive Date: 20070921
  Receipt Date: 20070913
  Transmission Date: 20080115
  Serious: Yes (Hospitalization)
  Sender: FDA-Public Use
  Company Number: US-ELI_LILLY_AND_COMPANY-US200709002739

PATIENT
  Age: 62 Year
  Sex: Female

DRUGS (7)
  1. HUMALOG MIX 75/25 [Suspect]
     Indication: DIABETES MELLITUS
  2. NORVASC [Concomitant]
  3. HYZAAR [Concomitant]
  4. CRESTOR [Concomitant]
  5. AVANDAMET [Concomitant]
  6. AMLODIPINE [Concomitant]
  7. MELOXICAM [Concomitant]

REACTIONS (7)
  - AMNESIA [None]
  - BLOOD CHOLESTEROL INCREASED [None]
  - BLOOD GLUCOSE DECREASED [None]
  - CEREBROVASCULAR ACCIDENT [None]
  - HYPERTENSION [None]
  - INCORRECT DOSE ADMINISTERED [None]
  - SPEECH DISORDER [None]
